FAERS Safety Report 25991533 (Version 2)
Quarter: 2025Q4

REPORT INFORMATION
  Report Type: Spontaneous
  Country: US (occurrence: US)
  Receive Date: 20251103
  Receipt Date: 20251115
  Transmission Date: 20260118
  Serious: No
  Sender: SANOFI AVENTIS
  Company Number: US-SA-2025SA320377

PATIENT
  Sex: Female

DRUGS (2)
  1. DUPIXENT [Suspect]
     Active Substance: DUPILUMAB
     Indication: Purpura non-thrombocytopenic
     Dosage: 300 MG, QOW
     Route: 058
  2. NEMLUVIO [NEMOLIZUMAB ILTO] [Concomitant]

REACTIONS (3)
  - Skin burning sensation [Recovered/Resolved]
  - Product use in unapproved indication [Unknown]
  - Drug ineffective [Unknown]
